APPROVED DRUG PRODUCT: METHOTREXATE SODIUM
Active Ingredient: METHOTREXATE SODIUM
Strength: EQ 50MG BASE/2ML (EQ 25MG BASE/ML)
Dosage Form/Route: INJECTABLE;INJECTION
Application: N011719 | Product #010 | TE Code: AP
Applicant: HOSPIRA INC
Approved: Dec 15, 2004 | RLD: Yes | RS: Yes | Type: RX